FAERS Safety Report 8572456-4 (Version None)
Quarter: 2012Q3

REPORT INFORMATION
  Report Type: 
  Country: None (occurrence: None)
  Receive Date: 20120806
  Receipt Date: 20120725
  Transmission Date: 20120928
  Serious: Yes (Other)
  Sender: FDA-Public Use
  Company Number: JP-ROCHE-1094053

PATIENT
  Sex: Male

DRUGS (5)
  1. PHENOBARBITAL TAB [Concomitant]
     Indication: DEMENTIA WITH LEWY BODIES
     Route: 048
  2. TAMIFLU [Suspect]
     Indication: INFLUENZA
     Route: 048
  3. TAMIFLU [Suspect]
     Route: 048
  4. QUETIAPINE FUMARATE [Concomitant]
     Indication: DEMENTIA WITH LEWY BODIES
     Route: 048
  5. QUETIAPINE FUMARATE [Concomitant]
     Route: 048

REACTIONS (1)
  - DELIRIUM [None]
